FAERS Safety Report 9648663 (Version 1)
Quarter: 2013Q4

REPORT INFORMATION
  Report Type: Spontaneous
  Country: US (occurrence: US)
  Receive Date: 20131028
  Receipt Date: 20131028
  Transmission Date: 20140711
  Serious: No
  Sender: FDA-Public Use
  Company Number: US-BAUSCH-BL-2013-004847

PATIENT
  Age: 59 Year
  Sex: Male

DRUGS (1)
  1. ZIRGAN (GANCICLOVIR OPHTHALMIC GEL) 0.15% [Suspect]
     Indication: EYE INFECTION
     Dosage: DROP; OPHTHALMIC
     Route: 047
     Dates: start: 201308, end: 20130823

REACTIONS (2)
  - Acne [Recovered/Resolved]
  - Vision blurred [Not Recovered/Not Resolved]
